FAERS Safety Report 18981717 (Version 5)
Quarter: 2023Q4

REPORT INFORMATION
  Report Type: Report from Study
  Country: CA (occurrence: CA)
  Receive Date: 20210308
  Receipt Date: 20231006
  Transmission Date: 20240110
  Serious: Yes (Other)
  Sender: FDA-Public Use
  Company Number: CA-JNJFOC-20200513852

PATIENT
  Age: 16 Year
  Sex: Female
  Weight: 69.4 kg

DRUGS (6)
  1. REMICADE [Suspect]
     Active Substance: INFLIXIMAB
     Indication: Inflammatory bowel disease
     Route: 042
     Dates: start: 20200429
  2. REMICADE [Suspect]
     Active Substance: INFLIXIMAB
     Dosage: AT WEEKS 2, 6 THEN EVERY 8 WEEKS
     Route: 042
  3. REMICADE [Suspect]
     Active Substance: INFLIXIMAB
     Dosage: ON 13-MAY-2020, THE PATIENT INFUSED 2ND INFUSION WITH 400 MG DOSE.
     Route: 042
  4. REMICADE [Suspect]
     Active Substance: INFLIXIMAB
     Dosage: INFUSED 5 WEEKS AGO FROM THE DATE OF REPORTING.
     Route: 042
  5. REMICADE [Suspect]
     Active Substance: INFLIXIMAB
     Dosage: DOSE INCREASED
     Route: 042
  6. REMICADE [Suspect]
     Active Substance: INFLIXIMAB
     Route: 042

REACTIONS (5)
  - Inflammatory bowel disease [Not Recovered/Not Resolved]
  - Malnutrition [Unknown]
  - Gastrooesophageal reflux disease [Unknown]
  - Malaise [Unknown]
  - Off label use [Unknown]

NARRATIVE: CASE EVENT DATE: 20200429
